FAERS Safety Report 4841146-3 (Version None)
Quarter: 2005Q4

REPORT INFORMATION
  Report Type: 
  Country: None (occurrence: None)
  Receive Date: 20051130
  Receipt Date: 20051012
  Transmission Date: 20060501
  Serious: Yes (Hospitalization, Other)
  Sender: FDA-Public Use
  Company Number: US-BRISTOL-MYERS SQUIBB COMPANY-13142203

PATIENT
  Sex: Male
  Weight: 82 kg

DRUGS (1)
  1. ABILIFY [Suspect]

REACTIONS (1)
  - OVERDOSE [None]
